FAERS Safety Report 8342231-4 (Version None)
Quarter: 2012Q2

REPORT INFORMATION
  Report Type: 
  Country: None (occurrence: None)
  Receive Date: 20120507
  Receipt Date: 20120429
  Transmission Date: 20120825
  Serious: Yes (Hospitalization)
  Sender: FDA-Public Use
  Company Number: US-AMGEN-USASP2012027160

PATIENT
  Age: 53 Year
  Sex: Female

DRUGS (1)
  1. ENBREL [Suspect]
     Indication: RHEUMATOID ARTHRITIS
     Dosage: 50 MG, QWK
     Dates: start: 20120217

REACTIONS (4)
  - LARGE INTESTINE ANASTOMOSIS [None]
  - INTESTINAL RESECTION [None]
  - INCISION SITE PAIN [None]
  - ABDOMINAL PAIN [None]
